FAERS Safety Report 15415583 (Version 3)
Quarter: 2018Q4

REPORT INFORMATION
  Report Type: Report from Study
  Country: FR (occurrence: FR)
  Receive Date: 20180922
  Receipt Date: 20181019
  Transmission Date: 20190204
  Serious: Yes (Other)
  Sender: FDA-Public Use
  Company Number: FR-AMGEN-FRACT2018131596

PATIENT
  Age: 72 Year
  Sex: Male
  Weight: 97 kg

DRUGS (12)
  1. DARATUMUMAB [Suspect]
     Active Substance: DARATUMUMAB
     Indication: PLASMA CELL MYELOMA
     Dosage: 16 MG, PER CHEMO REGIM
     Route: 042
     Dates: start: 20180219
  2. GLUCOSE [Concomitant]
     Active Substance: DEXTROSE
     Dosage: 250 ML, UNK
     Route: 042
     Dates: start: 20180228
  3. ZELITREX [Concomitant]
     Active Substance: VALACYCLOVIR HYDROCHLORIDE
     Dosage: 500 MG, UNK
     Dates: start: 20180220
  4. PARACETAMOL [Concomitant]
     Active Substance: ACETAMINOPHEN
     Dosage: 1 G, UNK
     Route: 042
     Dates: start: 20180219
  5. INEXIUM [Concomitant]
     Active Substance: ESOMEPRAZOLE
     Dosage: 10 MG, UNK
     Dates: start: 20180220
  6. CARFILZOMIB [Suspect]
     Active Substance: CARFILZOMIB
     Indication: PLASMA CELL MYELOMA
     Dosage: 59 MG, PER CHEMO REGIM
     Route: 042
     Dates: start: 20180219
  7. LEVOTHYROX [Concomitant]
     Active Substance: LEVOTHYROXINE
     Dosage: 100 MUG, UNK
     Dates: start: 2008
  8. BETARSEC [Concomitant]
     Dosage: 1 UNK, UNK
     Dates: start: 2014
  9. DEXAMETHASONE. [Concomitant]
     Active Substance: DEXAMETHASONE
     Indication: PLASMA CELL MYELOMA
     Dosage: 20-40 MG, UNK
     Dates: start: 20180219
  10. POLARAMINE [Concomitant]
     Active Substance: DEXCHLORPHENIRAMINE MALEATE
     Dosage: 5 MG, UNK
     Route: 042
     Dates: start: 20180219
  11. DARATUMUMAB [Suspect]
     Active Substance: DARATUMUMAB
     Dosage: 1552 MG, PER CHEMO REGIM
     Route: 042
  12. MONTELUKAST [Concomitant]
     Active Substance: MONTELUKAST SODIUM
     Dosage: 10 MG, UNK
     Route: 048
     Dates: start: 20180219

REACTIONS (1)
  - Pulmonary embolism [Not Recovered/Not Resolved]

NARRATIVE: CASE EVENT DATE: 20180918
